FAERS Safety Report 4359467-X (Version None)
Quarter: 2004Q2

REPORT INFORMATION
  Report Type: 
  Country: None (occurrence: None)
  Receive Date: 20040512
  Receipt Date: 20040430
  Transmission Date: 20050107
  Serious: Yes (Life-Threatening)
  Sender: FDA-Public Use
  Company Number: US-JNJFOC-20031105265

PATIENT
  Age: 53 Year
  Sex: Female
  Weight: 86.1834 kg

DRUGS (6)
  1. LEVAQUIN [Suspect]
     Indication: PROPHYLAXIS
     Dosage: 500 MG, INTRAVENOUS
     Route: 042
     Dates: start: 20031121, end: 20031121
  2. VERSED [Suspect]
     Indication: SEDATION
  3. LIDOCAINE [Concomitant]
  4. DECADRON [Suspect]
     Indication: NAUSEA
     Dosage: INTRAVENOUS
     Route: 042
     Dates: start: 20031121
  5. FENTANYL [Suspect]
     Indication: ANALGESIC EFFECT
     Dates: start: 20031121
  6. PROPOFOL [Suspect]
     Dosage: INTRAVENOUS
     Route: 042
     Dates: start: 20031121

REACTIONS (6)
  - ANAPHYLACTOID REACTION [None]
  - EJECTION FRACTION DECREASED [None]
  - HYPOTENSION [None]
  - HYPOXIA [None]
  - MYOCARDIAL ISCHAEMIA [None]
  - VENTRICULAR HYPOKINESIA [None]
